FAERS Safety Report 13448473 (Version 2)
Quarter: 2017Q3

REPORT INFORMATION
  Report Type: Report from Study
  Country: US (occurrence: US)
  Receive Date: 20170417
  Receipt Date: 20170705
  Transmission Date: 20171127
  Serious: No
  Sender: FDA-Public Use
  Company Number: PHEH2017US010969

PATIENT
  Sex: Female

DRUGS (2)
  1. COSENTYX [Suspect]
     Active Substance: SECUKINUMAB
     Indication: PSORIASIS
     Dosage: 300 MG, QMO (EVERY 4 WEEKS)
     Route: 058
  2. COSENTYX [Suspect]
     Active Substance: SECUKINUMAB
     Indication: PSORIATIC ARTHROPATHY

REACTIONS (9)
  - Arthralgia [Unknown]
  - Bone pain [Unknown]
  - Malaise [Recovering/Resolving]
  - Condition aggravated [Unknown]
  - Muscle spasms [Unknown]
  - Dizziness [Unknown]
  - Ear infection [Unknown]
  - Platelet count decreased [Unknown]
  - Gait disturbance [Unknown]
